FAERS Safety Report 12837749 (Version 6)
Quarter: 2016Q4

REPORT INFORMATION
  Report Type: Spontaneous
  Country: JP (occurrence: JP)
  Receive Date: 20161012
  Receipt Date: 20161201
  Transmission Date: 20170207
  Serious: Yes (Hospitalization)
  Sender: FDA-Public Use
  Company Number: JP-009507513-1610JPN003078

PATIENT
  Age: 74 Year
  Sex: Male

DRUGS (3)
  1. GLACTIV [Suspect]
     Active Substance: SITAGLIPTIN
     Indication: TYPE 2 DIABETES MELLITUS
     Dosage: 25 MG, QAM
     Route: 048
  2. GLACTIV [Suspect]
     Active Substance: SITAGLIPTIN
     Dosage: 12.5 MG, QAM
     Route: 048
  3. GLUTATHIONE [Suspect]
     Active Substance: GLUTATHIONE
     Indication: RETINAL DEGENERATION
     Dosage: UNK
     Route: 047

REACTIONS (2)
  - Type 1 diabetes mellitus [Unknown]
  - Insulin autoimmune syndrome [Unknown]
